FAERS Safety Report 8790848 (Version 1)
Quarter: 2012Q4

REPORT INFORMATION
  Report Type: Spontaneous
  Country: TH (occurrence: None)
  Receive Date: 20120910
  Receipt Date: 20120910
  Transmission Date: 20130627
  Serious: Yes (Death, Other)
  Sender: FDA-Public Use
  Company Number: DSA_59368_2012

PATIENT
  Age: 51 Year
  Sex: Female

DRUGS (2)
  1. FLUOROURACIL (FLUOROURACIL) [Suspect]
     Indication: CHORIOCARCINOMA
     Route: 042
  2. ACTINOMYCIN D [Suspect]

REACTIONS (3)
  - Febrile neutropenia [None]
  - Diarrhoea [None]
  - Mucosal inflammation [None]
